FAERS Safety Report 7585762-7 (Version None)
Quarter: 2011Q2

REPORT INFORMATION
  Report Type: 
  Country: None (occurrence: None)
  Receive Date: 20110624
  Receipt Date: 20110620
  Transmission Date: 20111010
  Serious: Yes (Other)
  Sender: FDA-Public Use
  Company Number: MSTR-NO-1106S-0174

PATIENT
  Age: 52 Year
  Sex: Female

DRUGS (1)
  1. METASTRON [Suspect]
     Indication: METASTATIC PAIN
     Dosage: , SINGLE DOSE, INTRAVENOUS
     Route: 042
     Dates: start: 20110419, end: 20110419

REACTIONS (1)
  - ANAEMIA [None]
